FAERS Safety Report 6791390-3 (Version None)
Quarter: 2010Q2

REPORT INFORMATION
  Report Type: 
  Country: None (occurrence: None)
  Receive Date: 20100624
  Receipt Date: 20100415
  Transmission Date: 20101027
  Serious: No
  Sender: FDA-Public Use
  Company Number: US-BAUSCH-2010BL001951

PATIENT
  Sex: Female

DRUGS (8)
  1. BESIVANCE [Suspect]
     Indication: ANTIBIOTIC PROPHYLAXIS
     Route: 047
     Dates: start: 20100201, end: 20100201
  2. BESIVANCE [Suspect]
     Indication: OFF LABEL USE
     Route: 047
     Dates: start: 20100201, end: 20100201
  3. XIBROM [Concomitant]
     Indication: PREOPERATIVE CARE
     Route: 047
  4. PREDNISOLONE ACETATE [Concomitant]
     Indication: PREOPERATIVE CARE
     Route: 047
  5. CYCLOGYL [Concomitant]
     Indication: PREOPERATIVE CARE
     Route: 047
  6. TETRACAINE POLYGYL STERILE OPHTHALMIC SOLUTION [Concomitant]
     Indication: PREOPERATIVE CARE
     Route: 047
  7. NEO-SYNEPHRINOL [Concomitant]
     Indication: PREOPERATIVE CARE
     Route: 047
  8. OCUFEN [Concomitant]
     Indication: PREOPERATIVE CARE
     Route: 047

REACTIONS (1)
  - CORNEAL OEDEMA [None]
